FAERS Safety Report 9650791 (Version 1)
Quarter: 2013Q4

REPORT INFORMATION
  Report Type: Spontaneous
  Country: US (occurrence: None)
  Receive Date: 20131025
  Receipt Date: 20131025
  Transmission Date: 20140711
  Serious: Yes (Hospitalization)
  Sender: FDA-Public Use
  Company Number: None

PATIENT
  Age: 72 Year
  Sex: Male
  Weight: 109 kg

DRUGS (21)
  1. LINEZOLID [Suspect]
     Indication: OSTEOMYELITIS
     Route: 042
     Dates: start: 20110612, end: 20110629
  2. LINEZOLID [Suspect]
     Indication: CELLULITIS
     Route: 042
     Dates: start: 20110612, end: 20110629
  3. ALBUTEROL [Concomitant]
  4. ASPIRIN [Concomitant]
  5. DOCUSATE [Concomitant]
  6. WARFARIN [Concomitant]
  7. DULCOLAX [Concomitant]
  8. FLEET ENEMA [Concomitant]
  9. LANTUS [Concomitant]
  10. FUROSEMIDE [Concomitant]
  11. METOPROLOL [Concomitant]
  12. MILK OF MAGNESIA [Concomitant]
  13. MVI [Concomitant]
  14. NIACIN [Concomitant]
  15. OXYCODONE [Concomitant]
  16. PRILOSEC [Concomitant]
  17. SIMVASTATIN [Concomitant]
  18. ACETAMINOPHEN [Concomitant]
  19. ONDANSETRON [Concomitant]
  20. LINEZOLID [Concomitant]
  21. ZOSYN [Concomitant]

REACTIONS (2)
  - Platelet count decreased [None]
  - Haemoglobin decreased [None]
